FAERS Safety Report 7881069-9 (Version None)
Quarter: 2011Q4

REPORT INFORMATION
  Report Type: 
  Country: None (occurrence: None)
  Receive Date: 20111101
  Receipt Date: 20110603
  Transmission Date: 20120403
  Serious: No
  Sender: FDA-Public Use
  Company Number: US-AMGEN-USASP2011028812

PATIENT
  Age: 53 Year
  Sex: Female

DRUGS (8)
  1. ABILIFY [Concomitant]
     Dosage: 10 MG, UNK
  2. CALCIUM +D [Concomitant]
     Dosage: UNK
  3. ENBREL [Suspect]
     Indication: PRODUCT USED FOR UNKNOWN INDICATION
     Dosage: 25 MG, 2 TIMES/WK
     Route: 058
  4. HYDROXYCHLOROQUINE SULFATE [Concomitant]
     Dosage: 200 MG, UNK
  5. METHOTREXATE [Concomitant]
     Dosage: 50 MG, UNK
  6. FOLIC ACID [Concomitant]
     Dosage: 20 MG, UNK
  7. FLUCONAZOLE [Concomitant]
     Dosage: 100 MG, UNK
  8. LORAZEPAM [Concomitant]
     Dosage: 0.5 MG, UNK

REACTIONS (2)
  - CHEILITIS [None]
  - SKIN LESION [None]
